FAERS Safety Report 6443150-0 (Version None)
Quarter: 2009Q4

REPORT INFORMATION
  Report Type: 
  Country: None (occurrence: None)
  Receive Date: 20091117
  Receipt Date: 20091116
  Transmission Date: 20100525
  Serious: Yes (Other)
  Sender: FDA-Public Use
  Company Number: B0585367A

PATIENT
  Sex: Female
  Weight: 55 kg

DRUGS (1)
  1. LAPATINIB [Suspect]
     Indication: BREAST CANCER
     Dosage: 1500MG PER DAY
     Route: 048
     Dates: start: 20090528

REACTIONS (3)
  - ANGIOEDEMA [None]
  - PRURITUS [None]
  - RASH [None]
